FAERS Safety Report 6673023-X (Version None)
Quarter: 2010Q2

REPORT INFORMATION
  Report Type: 
  Country: None (occurrence: None)
  Receive Date: 20100408
  Receipt Date: 20100317
  Transmission Date: 20101027
  Serious: Yes (Hospitalization)
  Sender: FDA-Public Use
  Company Number: B0645901A

PATIENT
  Sex: Male

DRUGS (5)
  1. ARTIST [Suspect]
     Indication: ATRIAL FIBRILLATION
     Dosage: 2.5MG PER DAY
     Route: 048
     Dates: start: 20091116, end: 20100213
  2. SUNRYTHM [Suspect]
     Indication: ATRIAL FIBRILLATION
     Dosage: 100MG TWICE PER DAY
     Route: 048
     Dates: start: 20090712
  3. CLARUTE [Suspect]
     Indication: HYPERTENSION
     Dosage: 100MG PER DAY
     Route: 048
     Dates: start: 20091215, end: 20100213
  4. SILODOSIN [Concomitant]
  5. ETISEDAN [Concomitant]

REACTIONS (1)
  - SINUS ARREST [None]
